FAERS Safety Report 23653971 (Version 1)
Quarter: 2024Q1

REPORT INFORMATION
  Report Type: Spontaneous
  Country: US (occurrence: None)
  Receive Date: 20240319
  Receipt Date: 20240319
  Transmission Date: 20240410
  Serious: Yes (Death)
  Sender: FDA-Public Use
  Company Number: None

PATIENT
  Age: 72 Year
  Sex: Male

DRUGS (1)
  1. XGEVA [Suspect]
     Active Substance: DENOSUMAB
     Indication: Hypercalcaemia
     Dosage: FREQUENCY : MONTHLY;?
     Route: 058
     Dates: start: 20220622, end: 20240229

REACTIONS (1)
  - Death [None]

NARRATIVE: CASE EVENT DATE: 20240229
